FAERS Safety Report 19350834 (Version 3)
Quarter: 2021Q3

REPORT INFORMATION
  Report Type: Spontaneous
  Country: US (occurrence: US)
  Receive Date: 20210531
  Receipt Date: 20210720
  Transmission Date: 20211014
  Serious: Yes (Other)
  Sender: FDA-Public Use
  Company Number: US-ELI_LILLY_AND_COMPANY-US202105010653

PATIENT
  Sex: Male

DRUGS (1)
  1. RETEVMO [Suspect]
     Active Substance: SELPERCATINIB
     Indication: MEDULLARY THYROID CANCER
     Dosage: 120 MG, BID
     Route: 048
     Dates: start: 20200210

REACTIONS (1)
  - Squamous cell carcinoma [Not Recovered/Not Resolved]
